FAERS Safety Report 21819780 (Version 4)
Quarter: 2023Q1

REPORT INFORMATION
  Report Type: Spontaneous
  Country: JP (occurrence: JP)
  Receive Date: 20230104
  Receipt Date: 20230329
  Transmission Date: 20230417
  Serious: Yes (Hospitalization)
  Sender: FDA-Public Use
  Company Number: JP-002147023-NVSJ2022JP277263

PATIENT
  Age: 75 Year
  Sex: Male
  Weight: 54 kg

DRUGS (5)
  1. TAFINLAR [Suspect]
     Active Substance: DABRAFENIB MESYLATE
     Indication: Lung adenocarcinoma recurrent
     Dosage: 150 MG, BID
     Route: 048
     Dates: start: 20221128, end: 20221228
  2. TAFINLAR [Suspect]
     Active Substance: DABRAFENIB MESYLATE
     Dosage: 300 MG
     Route: 048
     Dates: start: 20230217
  3. MEKINIST [Suspect]
     Active Substance: TRAMETINIB DIMETHYL SULFOXIDE
     Indication: Lung adenocarcinoma recurrent
     Dosage: 2 MG, QD
     Route: 048
     Dates: start: 20221128, end: 20221228
  4. MEKINIST [Suspect]
     Active Substance: TRAMETINIB DIMETHYL SULFOXIDE
     Dosage: 2 MG
     Route: 048
     Dates: start: 20230217
  5. MICARDIS [Concomitant]
     Active Substance: TELMISARTAN
     Indication: Hypertension
     Dosage: 20 MG, QD
     Route: 048

REACTIONS (6)
  - Duodenal ulcer [Recovering/Resolving]
  - Small intestinal haemorrhage [Unknown]
  - Abdominal pain upper [Unknown]
  - Vomiting [Unknown]
  - Pneumothorax [Recovered/Resolved]
  - Pancreatic enzymes increased [Not Recovered/Not Resolved]

NARRATIVE: CASE EVENT DATE: 20221226
